FAERS Safety Report 8774306 (Version 4)
Quarter: 2013Q1

REPORT INFORMATION
  Report Type: Report from Study
  Country: JP (occurrence: JP)
  Receive Date: 20120907
  Receipt Date: 20130311
  Transmission Date: 20140127
  Serious: Yes (Death, Hospitalization)
  Sender: FDA-Public Use
  Company Number: JP-009507513-1209JPN000320

PATIENT
  Age: 61 Year
  Sex: Male
  Weight: 61 kg

DRUGS (59)
  1. TEMODAL [Suspect]
     Indication: GLIOBLASTOMA MULTIFORME
     Dosage: 75 MG/M2, QD
     Route: 048
     Dates: start: 20061213, end: 20070123
  2. TEMODAL [Suspect]
     Dosage: 150 MG/M2, QD
     Route: 048
     Dates: start: 20070220, end: 20070224
  3. TEMODAL [Suspect]
     Dosage: 200 MG/M2, QD
     Route: 048
     Dates: start: 20070320, end: 20070324
  4. TEMODAL [Suspect]
     Dosage: 200 MG/M2, QD
     Route: 048
     Dates: start: 20070417, end: 20070421
  5. TEMODAL [Suspect]
     Dosage: 200 MG/M2, QD
     Route: 048
     Dates: start: 20090413, end: 20090417
  6. TEMODAL [Suspect]
     Dosage: 200 MG/M2, QD
     Route: 048
     Dates: start: 20090511, end: 20090515
  7. TEMODAL [Suspect]
     Dosage: 200 MG/M2, QD
     Route: 048
     Dates: start: 20090608, end: 20090612
  8. TEMODAL [Suspect]
     Dosage: 200 MG/M2, QD
     Route: 048
     Dates: start: 20090706, end: 20090710
  9. TEMODAL [Suspect]
     Dosage: 200 MG/M2, QD
     Route: 048
     Dates: start: 20090803, end: 20090807
  10. TEMODAL [Suspect]
     Dosage: 200 MG/M2, QD
     Route: 048
     Dates: start: 20090831, end: 20090904
  11. TEMODAL [Suspect]
     Dosage: 200 MG/M2, QD
     Route: 048
     Dates: start: 20090928, end: 20091002
  12. TEMODAL [Suspect]
     Dosage: 200 MG/M2, QD
     Route: 048
     Dates: start: 20101025, end: 20101029
  13. TEMODAL [Suspect]
     Dosage: 200 MG/M2, QD
     Route: 048
     Dates: start: 20101122, end: 20101126
  14. TEMODAL [Suspect]
     Dosage: 200 MG/M2, QD
     Route: 048
     Dates: start: 20101227, end: 20101231
  15. TEMODAL [Suspect]
     Dosage: 200 MG/M2, QD
     Route: 048
     Dates: start: 20110124, end: 20120615
  16. TEMODAL [Suspect]
     Dosage: 200 MG/M2, QD
     Route: 048
     Dates: start: 20110221, end: 20110225
  17. TEMODAL [Suspect]
     Dosage: 200 MG/M2, QD
     Route: 048
     Dates: start: 20110322, end: 20110326
  18. TEMODAL [Suspect]
     Dosage: 200 MG/M2, QD
     Route: 048
     Dates: start: 20110418, end: 20110422
  19. TEMODAL [Suspect]
     Dosage: 200 MG/M2, QD
     Route: 048
     Dates: start: 20110516, end: 20110520
  20. TEMODAL [Suspect]
     Dosage: 200 MG/M2, QD
     Route: 048
     Dates: start: 20110613, end: 20110617
  21. TEMODAL [Suspect]
     Dosage: 200 MG/M2, QD
     Route: 048
     Dates: start: 20110711, end: 20110715
  22. TEMODAL [Suspect]
     Dosage: 200 MG/M2, QD
     Route: 048
     Dates: start: 20110808, end: 20110812
  23. TEMODAL [Suspect]
     Dosage: 200 MG/M2, QD
     Route: 048
     Dates: start: 20110905, end: 20110909
  24. TEMODAL [Suspect]
     Dosage: 200 MG/M2, QD
     Route: 048
     Dates: start: 20111003, end: 20111007
  25. TEMODAL [Suspect]
     Dosage: 200 MG/M2, QD
     Route: 048
     Dates: start: 20111031, end: 20111104
  26. TEMODAL [Suspect]
     Dosage: 200 MG/M2, QD
     Route: 048
     Dates: start: 20111129, end: 20111203
  27. TEMODAL [Suspect]
     Dosage: 200 MG/M2, QD
     Route: 048
     Dates: start: 20111226, end: 20111230
  28. TEMODAL [Suspect]
     Dosage: 200 MG/M2, QD
     Route: 048
     Dates: start: 20120123, end: 20120127
  29. TEMODAL [Suspect]
     Dosage: 200 MG/M2, QD
     Route: 048
     Dates: start: 20120220, end: 20120224
  30. TEMODAL [Suspect]
     Dosage: 200 MG/M2, QD
     Route: 048
     Dates: start: 20120319, end: 20120323
  31. TEMODAL [Suspect]
     Dosage: 200 MG/M2, QD
     Route: 048
     Dates: start: 20120416, end: 20120420
  32. TEMODAL [Suspect]
     Dosage: 200 MG/M2, QD
     Route: 048
     Dates: start: 20120514, end: 20120518
  33. TEMODAL [Suspect]
     Dosage: 200 MG/M2, QD
     Route: 048
     Dates: start: 20120611, end: 20120615
  34. TEMODAL [Suspect]
     Dosage: 200 MG/M2, QD
     Route: 048
     Dates: start: 20070515, end: 20070519
  35. TEMODAL [Suspect]
     Dosage: 200 MG/M2, QD
     Route: 048
     Dates: start: 20070612, end: 20070616
  36. TEMODAL [Suspect]
     Dosage: 200 MG/M2, QD
     Route: 048
     Dates: start: 20070710, end: 20070714
  37. TEMODAL [Suspect]
     Dosage: 200 MG/M2, QD
     Route: 048
     Dates: start: 20070807, end: 20070811
  38. TEMODAL [Suspect]
     Dosage: 200 MG/M2, QD
     Route: 048
     Dates: start: 20070904, end: 20070908
  39. TEMODAL [Suspect]
     Dosage: 200 MG/M2, QD
     Route: 048
     Dates: start: 20071002, end: 20071006
  40. TEMODAL [Suspect]
     Dosage: 200 MG/M2, QD
     Route: 048
     Dates: start: 20071030, end: 20071103
  41. TEMODAL [Suspect]
     Dosage: 200 MG/M2, QD
     Route: 048
     Dates: start: 20071126, end: 20071130
  42. TEMODAL [Suspect]
     Dosage: 200 MG/M2, QD
     Route: 048
     Dates: start: 20071225, end: 20071229
  43. TEMODAL [Suspect]
     Dosage: 200 MG/M2, QD
     Route: 048
     Dates: start: 20080122, end: 20080126
  44. TEMODAL [Suspect]
     Dosage: 200 MG/M2, QD
     Route: 048
     Dates: start: 20080212, end: 20080216
  45. TEMODAL [Suspect]
     Dosage: 200 MG/M2, QD
     Route: 048
     Dates: start: 20080318, end: 20080322
  46. TEMODAL [Suspect]
     Dosage: 200 MG/M2, QD
     Route: 048
     Dates: start: 20080415, end: 20080419
  47. TEMODAL [Suspect]
     Dosage: 200 MG/M2, QD
     Route: 048
     Dates: start: 20080513, end: 20080517
  48. TEMODAL [Suspect]
     Dosage: 200 MG/M2, QD
     Route: 048
     Dates: start: 20080610, end: 20080614
  49. TEMODAL [Suspect]
     Dosage: 200 MG/M2, QD
     Route: 048
     Dates: start: 20080708, end: 20080712
  50. TEMODAL [Suspect]
     Dosage: 200 MG/M2, QD
     Route: 048
     Dates: start: 20070417, end: 20101126
  51. PRIMPERAN [Concomitant]
     Indication: PROPHYLAXIS
     Dosage: UNK
     Route: 048
     Dates: start: 20061213, end: 20120615
  52. EXCEGRAN [Concomitant]
     Indication: PROPHYLAXIS
     Dosage: UNK
     Route: 048
     Dates: start: 20061214, end: 20120524
  53. PROMAC (POLAPREZINC) [Concomitant]
     Indication: PROPHYLAXIS
     Dosage: UNK
     Route: 048
     Dates: start: 20061221, end: 20120615
  54. EPADEL [Concomitant]
     Dosage: UNK
     Route: 048
     Dates: start: 20100510, end: 20120709
  55. BEZATOL SR [Concomitant]
     Dosage: UNK
     Route: 048
     Dates: start: 20100315, end: 20120709
  56. LIVALO [Concomitant]
     Dosage: UNK
     Route: 048
     Dates: start: 20110418, end: 20120709
  57. TEGRETOL [Concomitant]
     Indication: PROPHYLAXIS
     Dosage: FORMULATION: POR
     Route: 048
     Dates: start: 20120522, end: 20120715
  58. KEPPRA [Concomitant]
     Indication: PROPHYLAXIS
     Dosage: UNK
     Route: 048
     Dates: start: 20120525, end: 20120715
  59. PARIET [Concomitant]
     Indication: PROPHYLAXIS
     Dosage: UNK
     Route: 048
     Dates: start: 20120529, end: 20120709

REACTIONS (5)
  - Pneumonia staphylococcal [Fatal]
  - Disseminated intravascular coagulation [Fatal]
  - Fracture [Recovered/Resolved]
  - Pneumonia [Recovered/Resolved]
  - Pyrexia [Not Recovered/Not Resolved]
